FAERS Safety Report 21334235 (Version 1)
Quarter: 2022Q3

REPORT INFORMATION
  Report Type: Spontaneous
  Country: US (occurrence: US)
  Receive Date: 20220914
  Receipt Date: 20220914
  Transmission Date: 20221026
  Serious: No
  Sender: FDA-Public Use
  Company Number: US-BRISTOL-MYERS SQUIBB COMPANY-2022-105454

PATIENT
  Age: 78 Year
  Sex: Male

DRUGS (1)
  1. REVLIMID [Suspect]
     Active Substance: LENALIDOMIDE
     Indication: Myeloid leukaemia
     Dosage: FREQ:  DAILY ON DAYS 1-21 WITH 7 DAYS OFF
     Route: 048
     Dates: start: 20220815

REACTIONS (4)
  - Product dose omission issue [Unknown]
  - Laboratory test abnormal [Unknown]
  - Neutrophil count decreased [Unknown]
  - Intentional product use issue [Unknown]
